FAERS Safety Report 5608787-7 (Version None)
Quarter: 2008Q1

REPORT INFORMATION
  Report Type: 
  Country: None (occurrence: None)
  Receive Date: 20080131
  Receipt Date: 20080128
  Transmission Date: 20080703
  Serious: Yes (Death, Other)
  Sender: FDA-Public Use
  Company Number: US-BRISTOL-MYERS SQUIBB COMPANY-14056659

PATIENT
  Age: 5 Day
  Sex: Female

DRUGS (1)
  1. COUMADIN [Suspect]
     Route: 064

REACTIONS (2)
  - DEATH [None]
  - MULTI-ORGAN DISORDER [None]
